FAERS Safety Report 23153192 (Version 1)
Quarter: 2023Q4

REPORT INFORMATION
  Report Type: Report from Study
  Country: CA (occurrence: CA)
  Receive Date: 20231107
  Receipt Date: 20231107
  Transmission Date: 20240110
  Serious: Yes (Other)
  Sender: FDA-Public Use
  Company Number: CA-TAKEDA-2022TUS042222

PATIENT
  Sex: Female

DRUGS (2)
  1. VEDOLIZUMAB [Suspect]
     Active Substance: VEDOLIZUMAB
     Indication: Crohn^s disease
     Dosage: 300 MILLIGRAM
     Route: 042
     Dates: start: 20220323
  2. VEDOLIZUMAB [Suspect]
     Active Substance: VEDOLIZUMAB
     Dosage: 300 MILLIGRAM
     Route: 042

REACTIONS (15)
  - Clostridium difficile infection [Unknown]
  - Uveitis [Unknown]
  - Skin bacterial infection [Not Recovered/Not Resolved]
  - Cystitis [Not Recovered/Not Resolved]
  - Burn infection [Not Recovered/Not Resolved]
  - Abdominal mass [Not Recovered/Not Resolved]
  - Fistula [Not Recovered/Not Resolved]
  - Illness [Unknown]
  - Therapeutic product effect variable [Unknown]
  - Malaise [Unknown]
  - COVID-19 [Unknown]
  - Diarrhoea [Unknown]
  - Abdominal pain [Unknown]
  - Anal fissure [Unknown]
  - Arthralgia [Not Recovered/Not Resolved]
